FAERS Safety Report 5823289-0 (Version None)
Quarter: 2008Q3

REPORT INFORMATION
  Report Type: 
  Country: None (occurrence: None)
  Receive Date: 20080724
  Receipt Date: 20080724
  Transmission Date: 20090109
  Serious: Yes (Disabling)
  Sender: FDA-Public Use
  Company Number: None

PATIENT
  Age: 69 Year
  Sex: Female
  Weight: 68.0396 kg

DRUGS (1)
  1. DETROL LA [Suspect]
     Indication: BLADDER DISORDER
     Dosage: 4MG  1 DAY
     Dates: start: 20070401, end: 20080101

REACTIONS (5)
  - DRY EYE [None]
  - DRY MOUTH [None]
  - INTRAOCULAR PRESSURE INCREASED [None]
  - ORAL BACTERIAL INFECTION [None]
  - TOOTH DISORDER [None]
